FAERS Safety Report 5850526-9 (Version None)
Quarter: 2008Q3

REPORT INFORMATION
  Report Type: 
  Country: None (occurrence: None)
  Receive Date: 20080820
  Receipt Date: 20080808
  Transmission Date: 20090109
  Serious: Yes (Hospitalization)
  Sender: FDA-Public Use
  Company Number: GB-RANBAXY-2008RR-17258

PATIENT

DRUGS (2)
  1. ATORVASTATIN CALCIUM [Suspect]
  2. SERTRALINE HYDROCHLORIDE [Suspect]

REACTIONS (1)
  - GASTRIC BYPASS [None]
